FAERS Safety Report 5012437-0 (Version None)
Quarter: 2006Q2

REPORT INFORMATION
  Report Type: 
  Country: None (occurrence: None)
  Receive Date: 20060526
  Receipt Date: 20060414
  Transmission Date: 20061013
  Serious: Yes (Life-Threatening)
  Sender: FDA-Public Use
  Company Number: LU-BOEHRINGER INGELHEIM PHARMACEUTICALS, INC.-2006-BL-00111BL

PATIENT
  Sex: Female

DRUGS (1)
  1. MOBIC [Suspect]
     Indication: BACK PAIN
     Route: 030
     Dates: start: 20060410, end: 20060410

REACTIONS (3)
  - HYPERSENSITIVITY [None]
  - HYPOTENSION [None]
  - MALAISE [None]
